FAERS Safety Report 6449173-X (Version None)
Quarter: 2009Q4

REPORT INFORMATION
  Report Type: 
  Country: None (occurrence: None)
  Receive Date: 20091120
  Receipt Date: 20091118
  Transmission Date: 20100525
  Serious: Yes (Death, Life-Threatening)
  Sender: FDA-Public Use
  Company Number: JP-BAYER-200813096BYL

PATIENT
  Age: 62 Year
  Sex: Male
  Weight: 60 kg

DRUGS (11)
  1. NEXAVAR [Suspect]
     Indication: RENAL CELL CARCINOMA
     Dosage: UNIT DOSE: 200 MG
     Route: 048
     Dates: start: 20081105, end: 20081128
  2. SUMIFERON [Concomitant]
     Indication: RENAL CELL CARCINOMA
     Route: 030
     Dates: start: 20070904, end: 20081208
  3. KALIMATE [Concomitant]
     Route: 048
     Dates: end: 20081208
  4. CALTAN [Concomitant]
     Route: 048
     Dates: end: 20081208
  5. RENAGEL [Concomitant]
     Route: 048
     Dates: end: 20081208
  6. SENNOSIDE [Concomitant]
     Route: 048
     Dates: end: 20081208
  7. ROCALTROL [Concomitant]
     Route: 048
     Dates: end: 20081208
  8. KERATINAMIN [Concomitant]
     Route: 061
     Dates: start: 20081109, end: 20081116
  9. VOLTAREN [Concomitant]
     Route: 054
     Dates: start: 20081111, end: 20081208
  10. CODEINE PHOSPHATE [Concomitant]
     Route: 048
     Dates: start: 20081114, end: 20081208
  11. OMEPRAL [Concomitant]
     Route: 048
     Dates: start: 20081129, end: 20081208

REACTIONS (4)
  - PANCREATIC ENZYMES INCREASED [None]
  - PLATELET COUNT DECREASED [None]
  - RASH [None]
  - RENAL CELL CARCINOMA [None]
